FAERS Safety Report 10693312 (Version 2)
Quarter: 2015Q1

REPORT INFORMATION
  Report Type: Spontaneous
  Country: US (occurrence: US)
  Receive Date: 20150106
  Receipt Date: 20150106
  Transmission Date: 20150720
  Serious: Yes (Death, Hospitalization)
  Sender: FDA-Public Use
  Company Number: US-UNITED THERAPEUTICS-UNT-2014-008085

PATIENT
  Age: 43 Year
  Sex: Female
  Weight: 65.31 kg

DRUGS (3)
  1. REMODULIN [Suspect]
     Active Substance: TREPROSTINIL
     Indication: COR PULMONALE CHRONIC
     Dosage: 0.052 ?G/KG, CONTINUING
     Route: 058
     Dates: start: 20130417, end: 20140925
  2. TRACLEER [Concomitant]
     Active Substance: BOSENTAN\BOSENTAN MONOHYDRATE
     Indication: PULMONARY ARTERIAL HYPERTENSION
  3. TRACLEER [Concomitant]
     Active Substance: BOSENTAN\BOSENTAN MONOHYDRATE
     Indication: MIXED CONNECTIVE TISSUE DISEASE

REACTIONS (3)
  - Pulmonary arterial hypertension [Unknown]
  - Organ failure [Fatal]
  - Diarrhoea [Unknown]

NARRATIVE: CASE EVENT DATE: 20140919
